FAERS Safety Report 9290786 (Version 1)
Quarter: 2013Q2

REPORT INFORMATION
  Report Type: Report from Study
  Country: US (occurrence: US)
  Receive Date: 20130515
  Receipt Date: 20130515
  Transmission Date: 20140414
  Serious: Yes (Other)
  Sender: FDA-Public Use
  Company Number: US-PURDUE-USA-2013-0102162

PATIENT
  Sex: Male

DRUGS (1)
  1. OXYCONTIN (NDA 22-272) [Suspect]
     Indication: PAIN
     Dosage: 240 MG, Q8H
     Route: 048
     Dates: end: 201105

REACTIONS (5)
  - Neurological complication associated with device [Unknown]
  - Medical device implantation [Unknown]
  - Hypoaesthesia [Unknown]
  - Hyperhidrosis [Unknown]
  - Diarrhoea [Unknown]
